FAERS Safety Report 7287922-1 (Version None)
Quarter: 2011Q1

REPORT INFORMATION
  Report Type: 
  Country: None (occurrence: None)
  Receive Date: 20110211
  Receipt Date: 20110207
  Transmission Date: 20110831
  Serious: No
  Sender: FDA-Public Use
  Company Number: US-PFIZER INC-2011027298

PATIENT
  Sex: Female
  Weight: 111 kg

DRUGS (1)
  1. PREMPRO [Suspect]
     Indication: HORMONE THERAPY
     Dosage: 0.3/1.5 MG DAILY
     Route: 048

REACTIONS (3)
  - HEADACHE [None]
  - METRORRHAGIA [None]
  - NAUSEA [None]
